FAERS Safety Report 7037552-1 (Version None)
Quarter: 2010Q4

REPORT INFORMATION
  Report Type: 
  Country: None (occurrence: None)
  Receive Date: 20101011
  Receipt Date: 20100930
  Transmission Date: 20110411
  Serious: Yes (Other)
  Sender: FDA-Public Use
  Company Number: GB-JNJFOC-20100902799

PATIENT
  Sex: Female
  Weight: 101 kg

DRUGS (7)
  1. STELARA [Suspect]
     Indication: PSORIASIS
     Route: 058
  2. DICLOFENAC SODIUM [Concomitant]
     Indication: PAIN
     Route: 065
  3. SENNA [Concomitant]
     Indication: CONSTIPATION
     Route: 065
  4. TRAMADOL [Concomitant]
     Indication: PAIN
     Route: 065
  5. PARACETAMOL [Concomitant]
     Indication: PAIN
     Route: 065
  6. GABAPENTIN [Concomitant]
     Indication: PAIN
     Route: 065
  7. LACTULOSE [Concomitant]
     Indication: CONSTIPATION
     Route: 065

REACTIONS (4)
  - DACTYLITIS [None]
  - DRUG INEFFECTIVE [None]
  - PSORIASIS [None]
  - SYNOVITIS [None]
